FAERS Safety Report 4980324-X (Version None)
Quarter: 2006Q2

REPORT INFORMATION
  Report Type: 
  Country: None (occurrence: None)
  Receive Date: 20060421
  Receipt Date: 20060421
  Transmission Date: 20061013
  Serious: Yes (Life-Threatening, Hospitalization)
  Sender: FDA-Public Use
  Company Number: None

PATIENT
  Sex: Male
  Weight: 94.3482 kg

DRUGS (13)
  1. CUBICIN [Suspect]
     Indication: STAPHYLOCOCCAL INFECTION
     Dosage: 540MG   ONCE DAILY   IV
     Route: 042
     Dates: start: 20060301, end: 20060316
  2. PRAVACHOL [Concomitant]
  3. FLEXERIL [Concomitant]
  4. FLOMAX [Concomitant]
  5. KLONOPIN [Concomitant]
  6. MINOCYCLINE HCL [Concomitant]
  7. VALSARTAN [Concomitant]
  8. NIFEDIPINE [Concomitant]
  9. MIRALAX [Concomitant]
  10. CARDURA [Concomitant]
  11. HYDROCHLOROTHIAZIDE [Concomitant]
  12. LANTUS [Concomitant]
  13. HEPARIN LOCK-FLUSH [Concomitant]

REACTIONS (4)
  - BACK PAIN [None]
  - BLOOD CREATINE PHOSPHOKINASE INCREASED [None]
  - BLOOD CREATININE INCREASED [None]
  - PAIN IN EXTREMITY [None]
